FAERS Safety Report 10014398 (Version 2)
Quarter: 2014Q2

REPORT INFORMATION
  Report Type: Spontaneous
  Country: US (occurrence: US)
  Receive Date: 20140317
  Receipt Date: 20140408
  Transmission Date: 20141212
  Serious: No
  Sender: FDA-Public Use
  Company Number: US-009507513-1403USA002472

PATIENT
  Age: 35 Year
  Sex: Female

DRUGS (1)
  1. NASONEX [Suspect]
     Dosage: DAILY DOSE: 2
     Dates: start: 20140106

REACTIONS (2)
  - Drug dose omission [Unknown]
  - Product quality issue [Unknown]
